FAERS Safety Report 7731845-8 (Version None)
Quarter: 2011Q3

REPORT INFORMATION
  Report Type: 
  Country: None (occurrence: None)
  Receive Date: 20110906
  Receipt Date: 20110824
  Transmission Date: 20111222
  Serious: Yes (Other)
  Sender: FDA-Public Use
  Company Number: BR-ROCHE-798818

PATIENT
  Sex: Male
  Weight: 73 kg

DRUGS (2)
  1. ROFERON-A [Suspect]
     Indication: HEPATITIS C
     Route: 058
     Dates: start: 20100501, end: 20110501
  2. RIBAVIRIN [Concomitant]

REACTIONS (2)
  - DRUG INEFFECTIVE [None]
  - INFARCTION [None]
